FAERS Safety Report 6942644-9 (Version None)
Quarter: 2010Q3

REPORT INFORMATION
  Report Type: 
  Country: None (occurrence: None)
  Receive Date: 20100826
  Receipt Date: 20100820
  Transmission Date: 20110219
  Serious: Yes (Hospitalization)
  Sender: FDA-Public Use
  Company Number: AU-PERRIGO-10AU012399

PATIENT
  Age: 26 Year
  Sex: Male

DRUGS (1)
  1. IBUPROFEN [Suspect]
     Indication: BACK PAIN
     Dosage: HIGH DOSES
     Route: 048

REACTIONS (9)
  - ANAEMIA [None]
  - DEHYDRATION [None]
  - DUODENAL STENOSIS [None]
  - FOOD INTOLERANCE [None]
  - HYPOVOLAEMIA [None]
  - MALNUTRITION [None]
  - NAUSEA [None]
  - VOMITING [None]
  - WEIGHT DECREASED [None]
